FAERS Safety Report 6772936-8 (Version None)
Quarter: 2010Q2

REPORT INFORMATION
  Report Type: 
  Country: None (occurrence: None)
  Receive Date: 20100520
  Receipt Date: 20100217
  Transmission Date: 20101027
  Serious: Yes (Other)
  Sender: FDA-Public Use
  Company Number: 2010007321

PATIENT
  Sex: Female

DRUGS (1)
  1. PROVERA [Suspect]

REACTIONS (2)
  - HYPERSENSITIVITY [None]
  - URTICARIA [None]
